FAERS Safety Report 15640846 (Version 2)
Quarter: 2018Q4

REPORT INFORMATION
  Report Type: Spontaneous
  Country: DE (occurrence: DE)
  Receive Date: 20181120
  Receipt Date: 20181129
  Transmission Date: 20190205
  Serious: Yes (Death)
  Sender: FDA-Public Use
  Company Number: DE-ELI_LILLY_AND_COMPANY-DE201811008946

PATIENT
  Age: 77 Year
  Sex: Male
  Weight: 80 kg

DRUGS (1)
  1. ERBITUX [Suspect]
     Active Substance: CETUXIMAB
     Indication: PRODUCT USED FOR UNKNOWN INDICATION
     Dosage: 400 MG, UNKNOWN
     Route: 042
     Dates: start: 20181019, end: 20181019

REACTIONS (3)
  - Multiple organ dysfunction syndrome [Fatal]
  - Autoimmune pancytopenia [Fatal]
  - Autoimmune hepatitis [Fatal]

NARRATIVE: CASE EVENT DATE: 2018
